FAERS Safety Report 6147603-4 (Version None)
Quarter: 2009Q2

REPORT INFORMATION
  Report Type: 
  Country: None (occurrence: None)
  Receive Date: 20090408
  Receipt Date: 20090406
  Transmission Date: 20091009
  Serious: Yes (Other)
  Sender: FDA-Public Use
  Company Number: US-BAYER-200910983BCC

PATIENT
  Age: 65 Year
  Sex: Male
  Weight: 84 kg

DRUGS (15)
  1. ASPIRIN [Suspect]
     Indication: ARTERIAL OCCLUSIVE DISEASE
     Dosage: TOTAL DAILY DOSE: 81 MG  UNIT DOSE: 81 MG
     Route: 048
     Dates: start: 20031101
  2. PLAVIX [Suspect]
     Indication: ARTERIAL OCCLUSIVE DISEASE
     Dosage: TOTAL DAILY DOSE: 75 MG  UNIT DOSE: 75 MG
     Route: 048
     Dates: start: 20031101
  3. RAMIPRIL [Concomitant]
     Dosage: AS USED: 10 MG
     Dates: start: 20031101
  4. METOPROLOL SUCCINATE [Concomitant]
     Dosage: TOTAL DAILY DOSE: 50 MG
     Dates: start: 20031101
  5. EZETIMIBE W/SIMVASTATIN [Concomitant]
     Dosage: TOTAL DAILY DOSE: 40 MG
     Dates: start: 20031101
  6. NIACIN [Concomitant]
     Dosage: TOTAL DAILY DOSE: 500 MG
     Dates: start: 20031101
  7. AMLODIPINE BESYLATE [Concomitant]
     Dosage: TOTAL DAILY DOSE: 10 MG
     Dates: start: 20031101
  8. MULTI-VITAMIN [Concomitant]
     Dosage: TOTAL DAILY DOSE: 1 DF  UNIT DOSE: 1 DF
     Dates: start: 20031101
  9. CALCIUM [Concomitant]
     Dosage: TOTAL DAILY DOSE: 2 DF  UNIT DOSE: 1 DF
     Dates: start: 20031101
  10. FISH OIL [Concomitant]
     Dosage: TOTAL DAILY DOSE: 1 DF  UNIT DOSE: 1 DF
     Dates: start: 20031101
  11. COD LIVER OIL [Concomitant]
     Dosage: TOTAL DAILY DOSE: 2 DF  UNIT DOSE: 1 DF
     Dates: start: 20031101
  12. GINKO BILOBA [Concomitant]
     Dosage: TOTAL DAILY DOSE: 4 DF  UNIT DOSE: 1 DF
     Dates: start: 20031101
  13. SAW PALMETTO [Concomitant]
     Dosage: TOTAL DAILY DOSE: 1 DF  UNIT DOSE: 1 DF
     Dates: start: 20031101
  14. FLAXSEED OIL [Concomitant]
     Dosage: TOTAL DAILY DOSE: 1 DF  UNIT DOSE: 1 DF
     Dates: start: 20031101
  15. PEPCID [Concomitant]
     Dates: start: 20081001

REACTIONS (3)
  - ABDOMINAL PAIN UPPER [None]
  - GASTRIC ULCER [None]
  - GASTROOESOPHAGEAL REFLUX DISEASE [None]
